FAERS Safety Report 10664103 (Version 1)
Quarter: 2014Q4

REPORT INFORMATION
  Report Type: Spontaneous
  Country: FI (occurrence: FI)
  Receive Date: 20141219
  Receipt Date: 20141219
  Transmission Date: 20150529
  Serious: Yes (Other)
  Sender: FDA-Public Use
  Company Number: FI-JNJFOC-20141204667

PATIENT

DRUGS (1)
  1. STELARA [Suspect]
     Active Substance: USTEKINUMAB
     Indication: PRODUCT USED FOR UNKNOWN INDICATION
     Route: 058

REACTIONS (5)
  - Malignant melanoma [Unknown]
  - Herpes virus infection [Unknown]
  - Upper respiratory tract infection [Unknown]
  - Pyelonephritis [Unknown]
  - Haemorrhagic fever with renal syndrome [Unknown]
